FAERS Safety Report 12951740 (Version 2)
Quarter: 2016Q4

REPORT INFORMATION
  Report Type: Report from Study
  Country: None (occurrence: KR)
  Receive Date: 20161117
  Receipt Date: 20161117
  Transmission Date: 20170207
  Serious: Yes (Other)
  Sender: FDA-Public Use
  Company Number: KR-ABBVIE-16P-090-1776112-00

PATIENT

DRUGS (1)
  1. HUMIRA [Suspect]
     Active Substance: ADALIMUMAB
     Indication: CROHN^S DISEASE
     Route: 058

REACTIONS (12)
  - Ileocolostomy [Unknown]
  - Anal fistula [Unknown]
  - Arthralgia [Unknown]
  - Swelling face [Unknown]
  - Diarrhoea [Unknown]
  - Suicidal ideation [Unknown]
  - Dyschezia [Unknown]
  - Skin disorder [Unknown]
  - Drug ineffective [Unknown]
  - Social problem [Unknown]
  - Obstructive defaecation [Unknown]
  - Proctalgia [Unknown]

NARRATIVE: CASE EVENT DATE: 2015
